FAERS Safety Report 16650366 (Version 1)
Quarter: 2019Q3

REPORT INFORMATION
  Report Type: Spontaneous
  Country: FR (occurrence: FR)
  Receive Date: 20190731
  Receipt Date: 20190731
  Transmission Date: 20191004
  Serious: Yes (Other)
  Sender: FDA-Public Use
  Company Number: FR-SUN PHARMACEUTICAL INDUSTRIES LTD-2019RR-215782

PATIENT
  Age: 35 Year
  Sex: Male

DRUGS (5)
  1. SUCCINATE DE DOXYLAMINE [Suspect]
     Active Substance: DOXYLAMINE SUCCINATE
     Indication: PRODUCT USED FOR UNKNOWN INDICATION
     Dosage: (), UNK
     Route: 048
     Dates: start: 20190413
  2. CHLORHYDRATE DE DIPHENHYDRAMINE [Suspect]
     Active Substance: DIPHENHYDRAMINE HYDROCHLORIDE
     Indication: PRODUCT USED FOR UNKNOWN INDICATION
     Dosage: (), UNK
     Route: 048
     Dates: start: 20190413
  3. CHLORHYDRATE DE TIAPRIDE [Suspect]
     Active Substance: TIAPRIDE HYDROCHLORIDE
     Indication: PRODUCT USED FOR UNKNOWN INDICATION
     Dosage: (), UNK
     Route: 048
     Dates: start: 20190413
  4. MOCLOBEMIDE [Suspect]
     Active Substance: MOCLOBEMIDE
     Indication: PRODUCT USED FOR UNKNOWN INDICATION
     Dosage: (), UNK
     Route: 048
     Dates: start: 20190413
  5. CETIRIZINE [Suspect]
     Active Substance: CETIRIZINE HYDROCHLORIDE
     Indication: PRODUCT USED FOR UNKNOWN INDICATION
     Dosage: (), UNK
     Route: 048
     Dates: start: 20190413

REACTIONS (2)
  - Somnolence [Recovered/Resolved]
  - Vertigo [Recovered/Resolved]

NARRATIVE: CASE EVENT DATE: 20190413
